FAERS Safety Report 18460827 (Version 3)
Quarter: 2020Q4

REPORT INFORMATION
  Report Type: Spontaneous
  Country: RO (occurrence: RO)
  Receive Date: 20201103
  Receipt Date: 20201115
  Transmission Date: 20210114
  Serious: Yes (Other)
  Sender: FDA-Public Use
  Company Number: RO-CELLTRION INC.-2020RO030479

PATIENT

DRUGS (4)
  1. INFLIXIMAB PFIZER (UNKNOWN) [Suspect]
     Active Substance: INFLIXIMAB
     Dosage: UNK, EVERY 8 WEEKS
     Dates: end: 201602
  2. AZATHIOPRINE. [Concomitant]
     Active Substance: AZATHIOPRINE
     Indication: COLITIS ULCERATIVE
     Dosage: 2.5 MG/KG
     Dates: start: 201008, end: 201605
  3. INFLIXIMAB PFIZER (UNKNOWN) [Suspect]
     Active Substance: INFLIXIMAB
     Indication: COLITIS ULCERATIVE
     Dosage: 5 MG/KG 0,2,6 WEEKS
     Dates: start: 2010
  4. INFLIXIMAB PFIZER (UNKNOWN) [Suspect]
     Active Substance: INFLIXIMAB
     Dosage: 5 MG/KG EVERY 6 WEEKS
     Dates: start: 201008

REACTIONS (11)
  - Lupus-like syndrome [Unknown]
  - Drug specific antibody [Unknown]
  - Drug trough level [Unknown]
  - Condition aggravated [Unknown]
  - Histone antibody positive [Unknown]
  - Synovitis [Unknown]
  - DNA antibody positive [Unknown]
  - Off label use [Unknown]
  - Arthralgia [Unknown]
  - Arthritis [Unknown]
  - Joint effusion [Unknown]

NARRATIVE: CASE EVENT DATE: 201008
